FAERS Safety Report 6674378-2 (Version None)
Quarter: 2010Q2

REPORT INFORMATION
  Report Type: 
  Country: None (occurrence: None)
  Receive Date: 20100409
  Receipt Date: 20100330
  Transmission Date: 20101027
  Serious: Yes (Other)
  Sender: FDA-Public Use
  Company Number: US-B.I. PHARMACEUTICALS,INC./RIDGEFIELD-2010-BP-03691BP

PATIENT
  Sex: Female

DRUGS (13)
  1. SPIRIVA [Suspect]
     Dosage: 18 MCG
     Route: 055
     Dates: start: 20090101, end: 20100223
  2. ADVAIR DISKUS 100/50 [Suspect]
     Indication: CHRONIC OBSTRUCTIVE PULMONARY DISEASE
     Route: 055
     Dates: start: 20100101, end: 20100223
  3. ALBUTEROL SULFATE AUTOHALER [Concomitant]
  4. IPRATROPIUM BROMIDE [Concomitant]
  5. CEFUROXIME SODIUM [Concomitant]
  6. PREDNISONE TAB [Concomitant]
  7. AZITHROMYCIN [Concomitant]
  8. JANUMET [Concomitant]
  9. GLIMEPIRIDE [Concomitant]
  10. LISINOPRIL [Concomitant]
  11. AMLODIPINE [Concomitant]
  12. OMEPRAZOLE [Concomitant]
  13. SUCRALFATE [Concomitant]

REACTIONS (5)
  - DRUG ADMINISTRATION ERROR [None]
  - DRUG INEFFECTIVE [None]
  - EXPIRED DRUG ADMINISTERED [None]
  - HAEMOPTYSIS [None]
  - PNEUMONIA [None]
